FAERS Safety Report 20974298 (Version 1)
Quarter: 2022Q2

REPORT INFORMATION
  Report Type: Report from Study
  Country: CA (occurrence: CA)
  Receive Date: 20220617
  Receipt Date: 20220617
  Transmission Date: 20220721
  Serious: Yes (Other)
  Sender: FDA-Public Use
  Company Number: CA-Accord-265796

PATIENT
  Age: 30 Year
  Sex: Female

DRUGS (1)
  1. METHOTREXATE [Suspect]
     Active Substance: METHOTREXATE
     Indication: Corneal epithelial downgrowth
     Dosage: 400 UG/0.1 ML IN A WEEK (TOTAL 18 INJECTIONS IN RIGHT EYE AND 42 INJECTIONS IN LEFT EYE)
     Route: 031

REACTIONS (2)
  - Retinal detachment [Unknown]
  - Off label use [Unknown]
